FAERS Safety Report 10425741 (Version 1)
Quarter: 2014Q3

REPORT INFORMATION
  Report Type: Spontaneous
  Country: US (occurrence: US)
  Receive Date: 20140903
  Receipt Date: 20140903
  Transmission Date: 20150326
  Serious: No
  Sender: FDA-Public Use
  Company Number: US-B.I. PHARMACEUTICALS,INC./RIDGEFIELD-2014-BI-40017BP

PATIENT
  Sex: Male
  Weight: 95.4 kg

DRUGS (2)
  1. IRON SUPPLEMENTS [Concomitant]
     Active Substance: IRON
     Indication: PRODUCT USED FOR UNKNOWN INDICATION
     Route: 048
  2. PRADAXA [Suspect]
     Active Substance: DABIGATRAN ETEXILATE MESYLATE
     Indication: ATRIAL FIBRILLATION
     Dosage: 300 MG
     Route: 065

REACTIONS (3)
  - Haemorrhage subcutaneous [Recovered/Resolved]
  - Iron deficiency anaemia [Recovered/Resolved]
  - Haematoma [Recovered/Resolved]
